FAERS Safety Report 5055260-3 (Version None)
Quarter: 2006Q3

REPORT INFORMATION
  Report Type: 
  Country: None (occurrence: None)
  Receive Date: 20060719
  Receipt Date: 20060707
  Transmission Date: 20061208
  Serious: Yes (Death, Hospitalization)
  Sender: FDA-Public Use
  Company Number: US-BRISTOL-MYERS SQUIBB COMPANY-13436019

PATIENT
  Age: 75 Year
  Sex: Female

DRUGS (19)
  1. CARBOPLATIN [Suspect]
     Indication: NON-SMALL CELL LUNG CANCER
     Route: 042
     Dates: start: 20060605, end: 20060605
  2. PACLITAXEL [Suspect]
     Indication: NON-SMALL CELL LUNG CANCER
     Route: 042
     Dates: start: 20060605, end: 20060605
  3. BLINDED: SORAFENIB [Suspect]
     Indication: NON-SMALL CELL LUNG CANCER
     Route: 048
     Dates: start: 20060606, end: 20060626
  4. BLINDED: PLACEBO [Suspect]
     Indication: NON-SMALL CELL LUNG CANCER
     Route: 048
     Dates: start: 20060606, end: 20060606
  5. SYNTHROID [Concomitant]
  6. ESTRADIOL [Concomitant]
  7. NIFEDIPINE [Concomitant]
  8. HYDROCHLOROTHIAZIDE [Concomitant]
  9. ZOLOFT [Concomitant]
  10. COMPAZINE [Concomitant]
  11. LORAZEPAM [Concomitant]
  12. TUSSIONEX [Concomitant]
  13. TESSALON [Concomitant]
  14. ACTONEL [Concomitant]
  15. OMEPRAZOLE [Concomitant]
  16. ALOXI [Concomitant]
     Indication: ANTIEMETIC SUPPORTIVE CARE
     Dates: start: 20060605, end: 20060605
  17. BENADRYL [Concomitant]
     Indication: PROPHYLAXIS
     Dates: start: 20060605, end: 20060605
  18. DEXAMETHASONE TAB [Concomitant]
     Indication: PROPHYLAXIS
     Route: 042
     Dates: start: 20060605, end: 20060605
  19. ZANTAC [Concomitant]
     Indication: PROPHYLAXIS
     Dates: start: 20060605, end: 20060605

REACTIONS (4)
  - DEHYDRATION [None]
  - MALIGNANT NEOPLASM PROGRESSION [None]
  - NAUSEA [None]
  - VOMITING [None]
